FAERS Safety Report 5563451-8 (Version None)
Quarter: 2007Q4

REPORT INFORMATION
  Report Type: 
  Country: None (occurrence: None)
  Receive Date: 20071217
  Receipt Date: 20070611
  Transmission Date: 20080405
  Serious: No
  Sender: FDA-Public Use
  Company Number: US-ASTRAZENECA-2007UW09473

PATIENT
  Age: 45 Year
  Sex: Male
  Weight: 86.2 kg

DRUGS (4)
  1. CRESTOR [Suspect]
     Indication: DYSLIPIDAEMIA
     Route: 048
     Dates: start: 20061001
  2. HYDROCHLOROTHIAZIDE W/TRIAMTERENE [Concomitant]
  3. FUROSEMIDE [Concomitant]
  4. PAIN MEDICATIONS [Concomitant]

REACTIONS (2)
  - FIBROMYALGIA [None]
  - MYALGIA [None]
